APPROVED DRUG PRODUCT: PROCARDIA XL
Active Ingredient: NIFEDIPINE
Strength: 90MG
Dosage Form/Route: TABLET, EXTENDED RELEASE;ORAL
Application: N019684 | Product #003 | TE Code: AB2
Applicant: PFIZER LABORATORIES DIV PFIZER INC
Approved: Sep 6, 1989 | RLD: Yes | RS: Yes | Type: RX